FAERS Safety Report 23048939 (Version 1)
Quarter: 2023Q4

REPORT INFORMATION
  Report Type: Spontaneous
  Country: NL (occurrence: NL)
  Receive Date: 20231010
  Receipt Date: 20231010
  Transmission Date: 20240110
  Serious: Yes (Congenital Anomaly)
  Sender: FDA-Public Use
  Company Number: None

PATIENT
  Age: 0 Week
  Sex: Female
  Weight: 4.6 kg

DRUGS (3)
  1. LETROZOLE [Suspect]
     Active Substance: LETROZOLE
     Indication: Ovulation induction
     Dosage: STRENGTH: 2.5 MG, 1 DAY 1 PIECE FOR 5 DAYS
     Dates: start: 20220808, end: 20220813
  2. LEXAPRO [Suspect]
     Active Substance: ESCITALOPRAM OXALATE
     Indication: Mental disorder
     Dosage: STRENGTH: 20 MG, 1DD1
     Dates: start: 20200101
  3. CETIRIZINE [Suspect]
     Active Substance: CETIRIZINE HYDROCHLORIDE
     Indication: Hypersensitivity
     Dosage: STRENGTH: 10 MG, 1 DAY 1 PIECE
     Dates: start: 20220101

REACTIONS (2)
  - Congenital genital malformation female [Not Recovered/Not Resolved]
  - Exposure during pregnancy [Unknown]

NARRATIVE: CASE EVENT DATE: 20230615
